FAERS Safety Report 5003459-4 (Version None)
Quarter: 2006Q2

REPORT INFORMATION
  Report Type: 
  Country: None (occurrence: None)
  Receive Date: 20060512
  Receipt Date: 20060425
  Transmission Date: 20061013
  Serious: Yes (Hospitalization, Other)
  Sender: FDA-Public Use
  Company Number: US200604004281

PATIENT
  Age: 65 Year
  Sex: Male

DRUGS (2)
  1. HUMALOG MIX 75/25 [Suspect]
     Indication: DIABETES MELLITUS
     Dosage: 65 U, EACH MORNING
     Dates: start: 20020101
  2. ACTOS [Concomitant]

REACTIONS (5)
  - BLOOD GLUCOSE ABNORMAL [None]
  - FATIGUE [None]
  - INJECTION SITE BRUISING [None]
  - PHARMACEUTICAL PRODUCT COMPLAINT [None]
  - PROSTATE CANCER [None]
